FAERS Safety Report 13643296 (Version 2)
Quarter: 2017Q2

REPORT INFORMATION
  Report Type: Spontaneous
  Country: HU (occurrence: HU)
  Receive Date: 20170612
  Receipt Date: 20170628
  Transmission Date: 20170830
  Serious: Yes (Death)
  Sender: FDA-Public Use
  Company Number: HU-PFIZER INC-2017234944

PATIENT
  Age: 59 Year
  Sex: Male

DRUGS (4)
  1. GLYCERIN. [Concomitant]
     Active Substance: GLYCERIN
     Dosage: 4X HALF DL
  2. ZITAZONIUM [Suspect]
     Active Substance: TAMOXIFEN CITRATE
     Dosage: UNK
  3. BONEFOS [Concomitant]
     Active Substance: CLODRONATE DISODIUM
     Dosage: UNK
  4. SUTENT [Suspect]
     Active Substance: SUNITINIB MALATE
     Indication: CLEAR CELL RENAL CELL CARCINOMA
     Dosage: 50 MG, CYCLIC, 4/2 SCHEME, 28 DAYS ON, 14 DAYS BREAK
     Route: 048
     Dates: start: 20150909, end: 201704

REACTIONS (1)
  - Neoplasm progression [Fatal]

NARRATIVE: CASE EVENT DATE: 2017
